FAERS Safety Report 5741614-6 (Version None)
Quarter: 2008Q2

REPORT INFORMATION
  Report Type: 
  Country: None (occurrence: None)
  Receive Date: 20080519
  Receipt Date: 20070427
  Transmission Date: 20081010
  Serious: No
  Sender: FDA-Public Use
  Company Number: US-BAYER-US-2007-015887

PATIENT
  Age: 36 Year
  Sex: Female
  Weight: 68 kg

DRUGS (2)
  1. ULTRAVIST 300 [Suspect]
     Indication: COMPUTERISED TOMOGRAM ABDOMEN
     Dosage: UNIT DOSE: 145 ML
     Route: 042
     Dates: start: 20070425, end: 20070425
  2. READI-CAT [Concomitant]

REACTIONS (3)
  - HEADACHE [None]
  - SENSATION OF FOREIGN BODY [None]
  - URTICARIA [None]
